FAERS Safety Report 21407484 (Version 1)
Quarter: 2022Q4

REPORT INFORMATION
  Report Type: Spontaneous
  Country: CZ (occurrence: CZ)
  Receive Date: 20221004
  Receipt Date: 20221004
  Transmission Date: 20230113
  Serious: Yes (Hospitalization, Other)
  Sender: FDA-Public Use
  Company Number: CZ-JUBILANT CADISTA PHARMACEUTICALS-2022JUB00315

PATIENT
  Age: 49 Year
  Sex: Male

DRUGS (8)
  1. MYCOPHENOLATE MOFETIL [Suspect]
     Active Substance: MYCOPHENOLATE MOFETIL
     Dosage: 1 G, 1X/DAY (AT MONTH 2)
     Dates: start: 2019
  2. MYCOPHENOLATE MOFETIL [Suspect]
     Active Substance: MYCOPHENOLATE MOFETIL
     Dosage: 2 G (AT POD)
     Dates: start: 201907
  3. PREDNISONE [Suspect]
     Active Substance: PREDNISONE
     Indication: Immunosuppressant drug therapy
     Dosage: 5 MG, 1X/DAY (AT MONTH 3)
     Dates: start: 2019
  4. PREDNISONE [Suspect]
     Active Substance: PREDNISONE
     Dosage: 20 MG, 1X/DAY
     Dates: start: 201907
  5. ANTI-THYMOCYTE GLOBULIN (RABBIT) NOS [Suspect]
     Active Substance: LAPINE T-LYMPHOCYTE IMMUNE GLOBULIN
     Indication: Immunosuppressant drug therapy
     Dosage: 2.9 MG/KG, TOTAL
     Dates: start: 201907
  6. ISCALIMAB [Suspect]
     Active Substance: ISCALIMAB
     Indication: Immunosuppressant drug therapy
     Dosage: 300 MG (300 MG OR 600 MG PARTIALLY BLINDED)
     Dates: start: 201907
  7. ISCALIMAB [Suspect]
     Active Substance: ISCALIMAB
     Dosage: 600 MG (300 MG OR 600 MG PARTIALLY BLINDED)
     Dates: start: 201907
  8. TACROLIMUS [Suspect]
     Active Substance: TACROLIMUS
     Indication: Immunosuppressant drug therapy
     Dosage: UNK (TARGET TACROLIMUS LEVELS 5?7 ?G/L)
     Dates: start: 202102

REACTIONS (1)
  - Disseminated tuberculosis [Recovering/Resolving]

NARRATIVE: CASE EVENT DATE: 20210201
